FAERS Safety Report 23113431 (Version 2)
Quarter: 2024Q1

REPORT INFORMATION
  Report Type: Spontaneous
  Country: FR (occurrence: FR)
  Receive Date: 20231027
  Receipt Date: 20240213
  Transmission Date: 20240410
  Serious: Yes (Death, Hospitalization, Other)
  Sender: FDA-Public Use
  Company Number: FR-VALIDUS PHARMACEUTICALS LLC-FR-VDP-2023-016202

PATIENT

DRUGS (13)
  1. FUROSEMIDE [Suspect]
     Active Substance: FUROSEMIDE
     Indication: Product used for unknown indication
     Dosage: 1 DF, 1X
     Route: 048
     Dates: end: 20230614
  2. PREGABALIN [Suspect]
     Active Substance: PREGABALIN
     Indication: Product used for unknown indication
     Dosage: 1 DF, 4X
     Route: 048
     Dates: end: 20230614
  3. TOUJEO [Suspect]
     Active Substance: INSULIN GLARGINE
     Indication: Product used for unknown indication
     Dosage: 45 INTERNATIONAL UNIT, 4X
     Route: 058
     Dates: end: 20230614
  4. TAMSULOSIN HYDROCHLORIDE [Suspect]
     Active Substance: TAMSULOSIN HYDROCHLORIDE
     Indication: Product used for unknown indication
     Dosage: 1 DF, 1X
     Route: 048
     Dates: end: 20230614
  5. IRBESARTAN [Suspect]
     Active Substance: IRBESARTAN
     Indication: Wrong patient
     Dosage: 1 DF, 4X
     Route: 048
     Dates: start: 20230614, end: 20230614
  6. RISPERIDONE [Suspect]
     Active Substance: RISPERIDONE
     Indication: Wrong patient
     Dosage: 1 DF, 4X (FILM-COATED TABLET)
     Route: 048
     Dates: start: 20230614, end: 20230614
  7. ESCITALOPRAM OXALATE [Suspect]
     Active Substance: ESCITALOPRAM OXALATE
     Indication: Depression
     Dosage: 1 DF, 1X (FILM-COATED TABLET)
     Route: 048
     Dates: end: 20230614
  8. TIAPRIDE HYDROCHLORIDE [Suspect]
     Active Substance: TIAPRIDE HYDROCHLORIDE
     Indication: Wrong patient
     Dosage: 500 MG, 1X
     Route: 048
     Dates: start: 20230614, end: 20230614
  9. EPLERENONE [Suspect]
     Active Substance: EPLERENONE
     Indication: Cardiac failure
     Dosage: 1 DF, 1X
     Route: 048
     Dates: end: 20230614
  10. BISOPROLOL FUMARATE [Suspect]
     Active Substance: BISOPROLOL FUMARATE
     Indication: Cardiac failure
     Dosage: 7.5 MG, 4X
     Route: 048
     Dates: start: 20230614, end: 20230614
  11. ELIQUIS [Suspect]
     Active Substance: APIXABAN
     Indication: Transcatheter aortic valve implantation
     Dosage: 1 DF, 4X
     Route: 048
     Dates: end: 20230614
  12. LOXAPINE HYDROCHLORIDE [Suspect]
     Active Substance: LOXAPINE HYDROCHLORIDE
     Indication: Wrong patient
     Dosage: 1 DF, 1X (FILM-COATED TABLET)
     Route: 048
     Dates: start: 20230614, end: 20230614
  13. METFORMIN HYDROCHLORIDE [Suspect]
     Active Substance: METFORMIN HYDROCHLORIDE
     Indication: Wrong patient
     Dosage: 1 DF, 1X (FILM-COATED TABLET)
     Route: 048
     Dates: start: 20230614, end: 20230614

REACTIONS (4)
  - Death [Fatal]
  - Haemodynamic instability [Not Recovered/Not Resolved]
  - Disturbance in attention [Not Recovered/Not Resolved]
  - Product administration error [Unknown]

NARRATIVE: CASE EVENT DATE: 20230614
